FAERS Safety Report 17241285 (Version 2)
Quarter: 2024Q4

REPORT INFORMATION
  Report Type: Report from Study
  Country: PL (occurrence: PL)
  Receive Date: 20200107
  Receipt Date: 20241111
  Transmission Date: 20250114
  Serious: Yes (Death)
  Sender: ACCORD
  Company Number: None

PATIENT
  Age: 10 Year
  Sex: Male

DRUGS (9)
  1. MYCOPHENOLATE SODIUM [Suspect]
     Active Substance: MYCOPHENOLATE SODIUM
     Indication: Product used for unknown indication
     Dosage: ON DAY +5 THEREAFTER
  2. FLUDARABINE [Suspect]
     Active Substance: FLUDARABINE PHOSPHATE
     Indication: Bone marrow conditioning regimen
     Dosage: ON DAYS -6 THROUGH -2
     Route: 065
  3. CYCLOSPORINE [Suspect]
     Active Substance: CYCLOSPORINE
     Indication: Immunosuppression
     Dosage: FROM THE 5 TH DAY AFTER HAPLOSCT
     Route: 065
  4. TREOSULFAN [Suspect]
     Active Substance: TREOSULFAN
     Indication: Bone marrow conditioning regimen
     Dosage: 10 G/M2 ON DAYS -4 TO -2
     Route: 065
  5. ACYCLOVIR [Suspect]
     Active Substance: ACYCLOVIR
     Indication: Antiviral prophylaxis
     Route: 042
  6. CYCLOPHOSPHAMIDE [Suspect]
     Active Substance: CYCLOPHOSPHAMIDE
     Indication: Prophylaxis against graft versus host disease
     Dosage: ON DAYS +3 AND +4
     Route: 065
  7. SULFAMETHOXAZOLE\TRIMETHOPRIM [Suspect]
     Active Substance: SULFAMETHOXAZOLE\TRIMETHOPRIM
     Indication: Antibiotic prophylaxis
     Route: 065
  8. GRANULOCYTE COLONY STIMULATING FACT [Concomitant]
     Dosage: 5 UG/KG, QD AT DAY 5 AFTER HAPLOSCT
  9. CYCLOPHOSPHAMIDE [Suspect]
     Active Substance: CYCLOPHOSPHAMIDE
     Indication: Prophylaxis against graft versus host disease
     Dosage: ON DAY -6 AND -5
     Route: 065

REACTIONS (3)
  - Mucosal inflammation [Fatal]
  - Sepsis [Fatal]
  - Achromobacter infection [Fatal]
